FAERS Safety Report 5425283-0 (Version None)
Quarter: 2007Q3

REPORT INFORMATION
  Report Type: 
  Country: None (occurrence: None)
  Receive Date: 20070824
  Receipt Date: 20070807
  Transmission Date: 20080115
  Serious: Yes (Other)
  Sender: FDA-Public Use
  Company Number: US-PFIZER INC-2007040307

PATIENT
  Sex: Male

DRUGS (2)
  1. CHANTIX [Suspect]
     Indication: SMOKING CESSATION THERAPY
     Dosage: FREQ:DAILY
     Route: 048
     Dates: start: 20070502, end: 20070515
  2. MULTIVITAMIN [Concomitant]
     Route: 048

REACTIONS (3)
  - CATARACT [None]
  - PHOTOPHOBIA [None]
  - VISUAL ACUITY REDUCED [None]
